FAERS Safety Report 10616075 (Version 3)
Quarter: 2014Q4

REPORT INFORMATION
  Report Type: Spontaneous
  Country: JP (occurrence: JP)
  Receive Date: 20141201
  Receipt Date: 20141216
  Transmission Date: 20150529
  Serious: Yes (Death, Hospitalization)
  Sender: FDA-Public Use
  Company Number: PHHY2014JP153919

PATIENT
  Age: 81 Year
  Sex: Male

DRUGS (2)
  1. ULTIBRO BREEZHALER [Suspect]
     Active Substance: GLYCOPYRRONIUM\INDACATEROL
     Indication: CHRONIC OBSTRUCTIVE PULMONARY DISEASE
     Dosage: UNK
     Route: 055
  2. FLUTIDE [Concomitant]
     Active Substance: FLUTICASONE PROPIONATE
     Indication: PRODUCTIVE COUGH
     Dosage: UNK
     Route: 065

REACTIONS (3)
  - Fall [Unknown]
  - Mouth injury [Unknown]
  - Respiratory failure [Fatal]

NARRATIVE: CASE EVENT DATE: 20141025
